FAERS Safety Report 11794262 (Version 5)
Quarter: 2016Q4

REPORT INFORMATION
  Report Type: Report from Study
  Country: US (occurrence: US)
  Receive Date: 20151202
  Receipt Date: 20161107
  Transmission Date: 20170206
  Serious: Yes (Other)
  Sender: FDA-Public Use
  Company Number: US-SA-2015SA164384

PATIENT
  Age: 32 Year
  Sex: Male

DRUGS (4)
  1. LEMTRADA [Suspect]
     Active Substance: ALEMTUZUMAB
     Indication: MULTIPLE SCLEROSIS
     Route: 041
     Dates: start: 20150929, end: 20150929
  2. LEMTRADA [Suspect]
     Active Substance: ALEMTUZUMAB
     Indication: MULTIPLE SCLEROSIS
     Route: 041
     Dates: start: 20161006, end: 20161008
  3. ACYCLOVIR. [Concomitant]
     Active Substance: ACYCLOVIR
  4. LEMTRADA [Suspect]
     Active Substance: ALEMTUZUMAB
     Indication: MULTIPLE SCLEROSIS
     Route: 041
     Dates: start: 20150924, end: 20150927

REACTIONS (8)
  - Urine analysis abnormal [Unknown]
  - Contusion [Unknown]
  - Rash [Recovered/Resolved]
  - Penile haemorrhage [Recovered/Resolved]
  - Renal disorder [Unknown]
  - Rash erythematous [Unknown]
  - Blood urine present [Recovered/Resolved]
  - Back pain [Unknown]

NARRATIVE: CASE EVENT DATE: 2015
